FAERS Safety Report 6399069-7 (Version None)
Quarter: 2009Q4

REPORT INFORMATION
  Report Type: 
  Country: None (occurrence: None)
  Receive Date: 20091013
  Receipt Date: 20091006
  Transmission Date: 20100525
  Serious: Yes (Life-Threatening)
  Sender: FDA-Public Use
  Company Number: JP-ABBOTT-09P-087-0599245-00

PATIENT
  Age: 76 Year
  Sex: Male
  Weight: 58 kg

DRUGS (5)
  1. LEUPLIN DEPOT [Suspect]
     Indication: PROSTATE CANCER STAGE IV
     Route: 058
     Dates: start: 20070712
  2. LEUPLIN DEPOT [Suspect]
     Dates: start: 20060714, end: 20070615
  3. CASODEX [Concomitant]
     Indication: PROSTATE CANCER STAGE IV
     Route: 048
  4. VESICARE [Concomitant]
     Indication: HYPERTONIC BLADDER
     Route: 048
     Dates: end: 20080616
  5. VESICARE [Concomitant]
     Indication: NOCTURIA
     Route: 048
     Dates: start: 20081226, end: 20090616

REACTIONS (2)
  - CEREBRAL INFARCTION [None]
  - INJECTION SITE DISCOLOURATION [None]
